FAERS Safety Report 5410587-8 (Version None)
Quarter: 2007Q3

REPORT INFORMATION
  Report Type: 
  Country: None (occurrence: None)
  Receive Date: 20070810
  Receipt Date: 20070424
  Transmission Date: 20080115
  Serious: No
  Sender: FDA-Public Use
  Company Number: A0644840A

PATIENT
  Age: 39 Year
  Sex: Female
  Weight: 52.3 kg

DRUGS (2)
  1. PAROXETINE [Suspect]
     Indication: DEPRESSION
     Dosage: 20MG PER DAY
     Route: 048
     Dates: start: 20070326, end: 20070326
  2. ATIVAN [Concomitant]
     Indication: INSOMNIA
     Dosage: 1MG AT NIGHT

REACTIONS (9)
  - ANXIETY [None]
  - HYPERHIDROSIS [None]
  - HYPOAESTHESIA [None]
  - MOOD ALTERED [None]
  - OBSESSIVE THOUGHTS [None]
  - PARAESTHESIA [None]
  - PHARMACEUTICAL PRODUCT COMPLAINT [None]
  - SOMNOLENCE [None]
  - TREMOR [None]
